FAERS Safety Report 19212900 (Version 1)
Quarter: 2021Q2

REPORT INFORMATION
  Report Type: Report from Study
  Country: BR (occurrence: BR)
  Receive Date: 20210504
  Receipt Date: 20210504
  Transmission Date: 20210717
  Serious: Yes (Other)
  Sender: FDA-Public Use
  Company Number: BR-TAKEDA-BR202000460

PATIENT
  Sex: Male
  Weight: 90 kg

DRUGS (5)
  1. HEMO?8R [Suspect]
     Active Substance: ANTIHEMOPHILIC FACTOR, HUMAN RECOMBINANT
     Dosage: 1750 INTERNATIONAL UNIT, 2/WEEK
     Route: 042
     Dates: start: 20180718
  2. HEMO?8R [Suspect]
     Active Substance: ANTIHEMOPHILIC FACTOR, HUMAN RECOMBINANT
     Indication: FACTOR VIII DEFICIENCY
     Dosage: UNK UNK, 3/WEEK
     Route: 042
     Dates: start: 20180718
  3. HEMO?8R [Suspect]
     Active Substance: ANTIHEMOPHILIC FACTOR, HUMAN RECOMBINANT
     Dosage: 1750 INTERNATIONAL UNIT, 2/WEEK
     Route: 042
  4. HEMO?8R [Suspect]
     Active Substance: ANTIHEMOPHILIC FACTOR, HUMAN RECOMBINANT
     Dosage: 1750 INTERNATIONAL UNIT, 2/WEEK
     Route: 042
     Dates: start: 20180718
  5. HEMO?8R [Suspect]
     Active Substance: ANTIHEMOPHILIC FACTOR, HUMAN RECOMBINANT
     Dosage: 2000 INTERNATIONAL UNIT, 3/WEEK
     Route: 042

REACTIONS (10)
  - Thyroid disorder [Recovering/Resolving]
  - Infusion site discolouration [Recovering/Resolving]
  - Vein discolouration [Recovering/Resolving]
  - Vein rupture [Recovering/Resolving]
  - Inability to afford medication [Unknown]
  - Poor venous access [Recovering/Resolving]
  - Weight increased [Not Recovered/Not Resolved]
  - Goitre [Unknown]
  - Gastritis [Unknown]
  - Product dose omission issue [Unknown]

NARRATIVE: CASE EVENT DATE: 2019
